FAERS Safety Report 6427956-X (Version None)
Quarter: 2009Q4

REPORT INFORMATION
  Report Type: 
  Country: None (occurrence: None)
  Receive Date: 20091105
  Receipt Date: 20091029
  Transmission Date: 20100525
  Serious: Yes (Hospitalization)
  Sender: FDA-Public Use
  Company Number: PHHY2009CH46978

PATIENT
  Sex: Female

DRUGS (4)
  1. RITALIN [Suspect]
     Indication: ATTENTION DEFICIT/HYPERACTIVITY DISORDER
     Dosage: 30 MG/DAY
     Dates: end: 20080420
  2. SEROQUEL [Suspect]
     Indication: DEPRESSION
     Dosage: 50 MG/DAY
     Dates: start: 20080421, end: 20080421
  3. TRAZODONE HCL [Suspect]
     Indication: DEPRESSION
     Dosage: UNK
     Dates: end: 20080420
  4. VENTOLIN [Concomitant]
     Indication: ASTHMA
     Dosage: UNK

REACTIONS (2)
  - ABORTION INDUCED [None]
  - DRUG EXPOSURE DURING PREGNANCY [None]
